FAERS Safety Report 6983415 (Version 4)
Quarter: 2013Q4

REPORT INFORMATION
  Report Type: Spontaneous
  Country: US (occurrence: US)
  Receive Date: 20090430
  Receipt Date: 20131129
  Transmission Date: 20140711
  Serious: Yes (Hospitalization, Disabling, Other)
  Sender: FDA-Public Use
  Company Number: US-ASTRAZENECA-2009UW01876

PATIENT
  Age: 53 Year
  Sex: Female
  Weight: 90.7 kg

DRUGS (26)
  1. NEXIUM [Suspect]
     Indication: DYSPEPSIA
     Dosage: ONCE A DAY
     Route: 048
  2. NEXIUM [Suspect]
     Indication: GASTROOESOPHAGEAL REFLUX DISEASE
     Dosage: ONCE A DAY
     Route: 048
  3. NEXIUM [Suspect]
     Indication: GASTROOESOPHAGEAL REFLUX DISEASE
     Dosage: ONCE A DAY
     Route: 048
  4. NEXIUM [Suspect]
     Indication: DYSPEPSIA
     Route: 048
     Dates: start: 20050503
  5. NEXIUM [Suspect]
     Indication: GASTROOESOPHAGEAL REFLUX DISEASE
     Route: 048
     Dates: start: 20050503
  6. NEXIUM [Suspect]
     Indication: GASTROOESOPHAGEAL REFLUX DISEASE
     Route: 048
     Dates: start: 20050503
  7. PRILOSEC OTC [Suspect]
     Route: 048
  8. PROTONIX [Concomitant]
     Route: 048
     Dates: start: 201106
  9. TAGAMET [Concomitant]
  10. METFORMIN [Concomitant]
     Indication: DIABETES MELLITUS
  11. ALTACE [Concomitant]
     Route: 048
     Dates: start: 20050503
  12. GLUCOTROL XL [Concomitant]
     Route: 048
     Dates: start: 20050503
  13. MAG-OX [Concomitant]
     Route: 048
     Dates: start: 20050503
  14. LANTUS [Concomitant]
     Dosage: 100U/ML
     Dates: start: 20071112
  15. PLAQUENIL [Concomitant]
     Route: 048
     Dates: start: 20071108
  16. DITROPAN XL [Concomitant]
     Dates: start: 20081022
  17. LIPITOR [Concomitant]
     Dates: start: 20071119
  18. SYNTHROID [Concomitant]
     Route: 048
     Dates: start: 20071121
  19. LEXAPRO [Concomitant]
     Route: 048
     Dates: start: 20080107
  20. ASPIRIN [Concomitant]
     Route: 048
     Dates: start: 201106
  21. HYDRODIURIL [Concomitant]
     Route: 048
     Dates: start: 201106
  22. ZESTRIL [Concomitant]
     Route: 048
  23. CLARITIN [Concomitant]
     Route: 048
     Dates: start: 201106
  24. ANTIVERT [Concomitant]
     Dosage: THREE TIMES A DAY AS NEEDED
     Route: 048
     Dates: start: 201106
  25. NIASPAN [Concomitant]
     Route: 048
     Dates: start: 201106
  26. ZOCOR [Concomitant]
     Route: 048

REACTIONS (23)
  - Rotator cuff syndrome [Unknown]
  - Overweight [Unknown]
  - Cerebrovascular accident [Unknown]
  - Osteoporosis [Unknown]
  - Systemic lupus erythematosus [Unknown]
  - Regurgitation [Unknown]
  - Sleep disorder due to a general medical condition [Unknown]
  - Throat irritation [Unknown]
  - Multiple fractures [Unknown]
  - Gout [Unknown]
  - Cluster headache [Unknown]
  - Arthritis [Unknown]
  - Calcium deficiency [Unknown]
  - Cataract [Unknown]
  - Cardiovascular disorder [Unknown]
  - Glaucoma [Unknown]
  - Hypothyroidism [Unknown]
  - Rheumatoid arthritis [Unknown]
  - Vitamin D deficiency [Unknown]
  - Gastrooesophageal reflux disease [Unknown]
  - Depression [Unknown]
  - Vomiting [Unknown]
  - Drug dose omission [Unknown]
